FAERS Safety Report 17769449 (Version 2)
Quarter: 2020Q2

REPORT INFORMATION
  Report Type: Spontaneous
  Country: US (occurrence: US)
  Receive Date: 20200512
  Receipt Date: 20200520
  Transmission Date: 20200714
  Serious: Yes (Death, Hospitalization)
  Sender: FDA-Public Use
  Company Number: US-ROCHE-2593856

PATIENT
  Sex: Male

DRUGS (1)
  1. HEMLIBRA [Suspect]
     Active Substance: EMICIZUMAB-KXWH
     Indication: PRODUCT USED FOR UNKNOWN INDICATION
     Dosage: NO
     Route: 065

REACTIONS (6)
  - Death [Fatal]
  - Fall [Fatal]
  - Cellulitis [Fatal]
  - Mental status changes [Fatal]
  - Infection [Unknown]
  - Diabetes mellitus inadequate control [Fatal]

NARRATIVE: CASE EVENT DATE: 202004
